FAERS Safety Report 8842665 (Version 1)
Quarter: 2012Q4

REPORT INFORMATION
  Report Type: 
  Country: US (occurrence: US)
  Receive Date: 20121016
  Receipt Date: 20121016
  Transmission Date: 20130627
  Serious: No
  Sender: FDA-Public Use
  Company Number: US-ASTRAZENECA-2012SE76014

PATIENT
  Age: 37 Year
  Sex: Male

DRUGS (3)
  1. SYMBICORT PMDI [Suspect]
     Indication: ASTHMA
     Dosage: 160/4.5 MCG, TWO TIMES A DAY
     Route: 055
  2. ANTI-HISTAMINES [Concomitant]
  3. STEROIDS [Concomitant]
     Route: 048

REACTIONS (2)
  - Asthma [Unknown]
  - Performance status decreased [Unknown]
